FAERS Safety Report 19013653 (Version 3)
Quarter: 2021Q2

REPORT INFORMATION
  Report Type: Report from Study
  Country: US (occurrence: US)
  Receive Date: 20210315
  Receipt Date: 20210426
  Transmission Date: 20210717
  Serious: Yes (Hospitalization, Other)
  Sender: FDA-Public Use
  Company Number: US-GILEAD-2021-0520868

PATIENT
  Age: 47 Year
  Sex: Female

DRUGS (50)
  1. CLONIDINE. [Concomitant]
     Active Substance: CLONIDINE
  2. HEPARIN [Concomitant]
     Active Substance: HEPARIN SODIUM
  3. LABETALOL [Concomitant]
     Active Substance: LABETALOL\LABETALOL HYDROCHLORIDE
  4. LIDOCAINE. [Concomitant]
     Active Substance: LIDOCAINE
  5. PIPERACILLIN AND TAZOBACTAM [Concomitant]
     Active Substance: PIPERACILLIN SODIUM\TAZOBACTAM SODIUM
  6. PROPOFOL. [Concomitant]
     Active Substance: PROPOFOL
  7. RIVAROXABAN [Concomitant]
     Active Substance: RIVAROXABAN
  8. SALBUTAMOL SULFATE [Concomitant]
     Active Substance: ALBUTEROL SULFATE
  9. REMDESIVIR. [Suspect]
     Active Substance: REMDESIVIR
     Indication: COVID-19
     Dosage: UNK, QD
     Route: 042
     Dates: start: 20210209
  10. ALBUMIN HUMAN [Concomitant]
     Active Substance: ALBUMIN HUMAN
  11. ESOMEPRAZOLE. [Concomitant]
     Active Substance: ESOMEPRAZOLE MAGNESIUM
  12. PHENYLEPHRINE [Concomitant]
     Active Substance: PHENYLEPHRINE HYDROCHLORIDE
  13. COLLAGEN [Concomitant]
     Active Substance: COLLAGEN
  14. ACETAZOLAMIDE. [Concomitant]
     Active Substance: ACETAZOLAMIDE
  15. ROCURONIUM [Concomitant]
     Active Substance: ROCURONIUM BROMIDE
  16. VORICONAZOLE. [Concomitant]
     Active Substance: VORICONAZOLE
  17. COLECALCIFEROL [Concomitant]
     Active Substance: CHOLECALCIFEROL
  18. PARACETAMOL [Concomitant]
     Active Substance: ACETAMINOPHEN
  19. AMLODIPINE [Concomitant]
     Active Substance: AMLODIPINE BESYLATE
  20. MICAFUNGIN. [Concomitant]
     Active Substance: MICAFUNGIN SODIUM
  21. VANCOMYCIN [Concomitant]
     Active Substance: VANCOMYCIN
  22. POTASSIUM CHLORIDE. [Concomitant]
     Active Substance: POTASSIUM CHLORIDE
  23. FENTANYL. [Concomitant]
     Active Substance: FENTANYL
  24. FUROSEMIDE. [Concomitant]
     Active Substance: FUROSEMIDE
  25. GABAPENTIN. [Concomitant]
     Active Substance: GABAPENTIN
  26. HYDROCORTISONE SODIUM SUCCINATE [Concomitant]
     Active Substance: HYDROCORTISONE SODIUM SUCCINATE
  27. PLACEBO [Suspect]
     Active Substance: UNSPECIFIED INGREDIENT
     Indication: COVID-19
     Dosage: UNK, ONCE
     Route: 042
     Dates: start: 20210209, end: 20210209
  28. CHLORDIAZEPOXIDE. [Concomitant]
     Active Substance: CHLORDIAZEPOXIDE
  29. MEROPENEM. [Concomitant]
     Active Substance: MEROPENEM
  30. MODAFINIL. [Concomitant]
     Active Substance: MODAFINIL
  31. SUMATRIPTAN. [Concomitant]
     Active Substance: SUMATRIPTAN
  32. CEFUROXIME. [Concomitant]
     Active Substance: CEFUROXIME
  33. BLINDED INFLIXIMAB [Suspect]
     Active Substance: INFLIXIMAB
     Indication: COVID-19
     Dosage: UNK, ONCE
     Route: 042
     Dates: start: 20210209, end: 20210209
  34. HYDROMORPHONE [Concomitant]
     Active Substance: HYDROMORPHONE
  35. NALOXONE [Concomitant]
     Active Substance: NALOXONE
  36. SODIUM CHLORIDE. [Concomitant]
     Active Substance: SODIUM CHLORIDE
  37. CARMELLOSE [Concomitant]
     Active Substance: CARBOXYMETHYLCELLULOSE
  38. CHLORHEXIDINE [Concomitant]
     Active Substance: CHLORHEXIDINE
  39. DIPHENHYDRAMINE LAURILSULFATE [Concomitant]
  40. METHYLPHENIDATE. [Concomitant]
     Active Substance: METHYLPHENIDATE
  41. AMANTADINE. [Concomitant]
     Active Substance: AMANTADINE HYDROCHLORIDE
  42. DEXMEDETOMIDINE. [Concomitant]
     Active Substance: DEXMEDETOMIDINE
  43. INSULIN [Concomitant]
     Active Substance: INSULIN NOS
  44. IPRATROPIUM [Concomitant]
     Active Substance: IPRATROPIUM
  45. MIDAZOLAM. [Concomitant]
     Active Substance: MIDAZOLAM
  46. NICARDIPINE [Concomitant]
     Active Substance: NICARDIPINE
  47. NYSTATIN. [Concomitant]
     Active Substance: NYSTATIN
  48. VASOPRESSIN. [Concomitant]
     Active Substance: VASOPRESSIN
  49. CLONIDINE HYDROCHLORIDE. [Concomitant]
     Active Substance: CLONIDINE HYDROCHLORIDE
  50. PHENAZOPYRIDINE. [Concomitant]
     Active Substance: PHENAZOPYRIDINE

REACTIONS (3)
  - Sepsis [Recovered/Resolved]
  - Systemic inflammatory response syndrome [Recovered/Resolved]
  - Posterior reversible encephalopathy syndrome [Recovering/Resolving]

NARRATIVE: CASE EVENT DATE: 20210224
